FAERS Safety Report 7319169-4 (Version None)
Quarter: 2011Q1

REPORT INFORMATION
  Report Type: 
  Country: None (occurrence: None)
  Receive Date: 20110228
  Receipt Date: 20110217
  Transmission Date: 20110831
  Serious: Yes (Other)
  Sender: FDA-Public Use
  Company Number: CN-GENZYME-FLUD-1000748

PATIENT

DRUGS (3)
  1. NEUPOGEN [Suspect]
     Indication: ACUTE LEUKAEMIA
     Dosage: 150-300 UG/D, FROM DAY 0 UNTIL TO NEUTROPHILS ARE GREATER THAN OR EQUAL TO 0.5X10E9/L.
     Route: 058
  2. FLUDARA [Suspect]
     Indication: ACUTE LEUKAEMIA
     Dosage: 25 MG/M2, QDX5 (DAYS 1 TO 5)
     Route: 042
  3. CYTARABINE [Suspect]
     Indication: ACUTE LEUKAEMIA
     Dosage: 2 G/M2, QDX5 (DAYS 1 TO 5)
     Route: 042

REACTIONS (13)
  - ASPARTATE AMINOTRANSFERASE INCREASED [None]
  - BLOOD BILIRUBIN INCREASED [None]
  - STAPHYLOCOCCAL SEPSIS [None]
  - ESCHERICHIA SEPSIS [None]
  - STOMATITIS [None]
  - GASTROINTESTINAL DISORDER [None]
  - HAEMATURIA [None]
  - ALANINE AMINOTRANSFERASE INCREASED [None]
  - NEUTROPENIA [None]
  - THROMBOCYTOPENIA [None]
  - PNEUMONIA [None]
  - PYREXIA [None]
  - PSEUDOMONAL SEPSIS [None]
